FAERS Safety Report 8254809-7 (Version None)
Quarter: 2012Q2

REPORT INFORMATION
  Report Type: 
  Country: None (occurrence: None)
  Receive Date: 20120403
  Receipt Date: 20120329
  Transmission Date: 20120825
  Serious: Yes (Hospitalization)
  Sender: FDA-Public Use
  Company Number: PHHY2012AU027566

PATIENT
  Sex: Male

DRUGS (1)
  1. CLOZARIL [Suspect]
     Dosage: 600 MG
     Dates: start: 19980811

REACTIONS (3)
  - AGGRESSION [None]
  - DELIRIUM [None]
  - PNEUMONIA [None]
